FAERS Safety Report 8104154 (Version 3)
Quarter: 2013Q4

REPORT INFORMATION
  Report Type: Spontaneous
  Country: US (occurrence: US)
  Receive Date: 20110824
  Receipt Date: 20131127
  Transmission Date: 20140711
  Serious: Yes (Hospitalization, Other)
  Sender: FDA-Public Use
  Company Number: US-BAYER-2011-074699

PATIENT
  Age: 18 Year
  Sex: Female

DRUGS (10)
  1. YASMIN [Suspect]
     Indication: CONTRACEPTION
     Dosage: UNK
     Route: 048
     Dates: start: 200512, end: 2007
  2. YASMIN [Suspect]
     Indication: POLYCYSTIC OVARIES
     Dosage: UNK
     Dates: end: 201001
  3. YAZ [Suspect]
     Indication: CONTRACEPTION
     Dosage: UNK
     Dates: start: 2007, end: 2008
  4. YAZ [Suspect]
     Indication: POLYCYSTIC OVARIES
     Dosage: UNK
     Dates: end: 201001
  5. ADVIL [Concomitant]
  6. NAPROXEN [Concomitant]
  7. SYNTHROID [Concomitant]
     Indication: HYPOTHYROIDISM
     Dosage: UNK
     Dates: start: 1989
  8. CYCLOBENZAPRINE [Concomitant]
     Dosage: 10 MG, 1 BEFORE SLEEP PRN
     Route: 048
     Dates: start: 20080501
  9. ACTOS [Concomitant]
     Dosage: 30 MG, TAKE ? TABLET FOR ONE MONTH THEN 1 TABLET EVERY DAY AT BEDTIME
     Route: 048
     Dates: start: 20080612, end: 20080718
  10. CYTOMEL [Concomitant]
     Dosage: 5 MCG, 1 DAILY
     Route: 048
     Dates: start: 20070626, end: 20090123

REACTIONS (4)
  - Gallbladder injury [None]
  - Cholecystitis chronic [None]
  - Injury [None]
  - Pain [None]
